FAERS Safety Report 6070028-7 (Version None)
Quarter: 2009Q1

REPORT INFORMATION
  Report Type: 
  Country: None (occurrence: None)
  Receive Date: 20090209
  Receipt Date: 20090129
  Transmission Date: 20090719
  Serious: Yes (Hospitalization, Other)
  Sender: FDA-Public Use
  Company Number: PHHY2008JP27294

PATIENT
  Sex: Female
  Weight: 40 kg

DRUGS (3)
  1. ZOMETA [Suspect]
     Indication: METASTASES TO BONE
     Dosage: UNK
     Route: 042
     Dates: start: 20071022, end: 20080929
  2. AREDIA [Suspect]
     Indication: METASTASES TO BONE
     Dosage: UNK
     Route: 042
     Dates: start: 20050131, end: 20070901
  3. ALENDRONATE SODIUM [Suspect]
     Dosage: UNK
     Route: 042
     Dates: start: 20040809, end: 20041201

REACTIONS (15)
  - ACIDOSIS [None]
  - ANAEMIA [None]
  - ANOREXIA [None]
  - DIABETES INSIPIDUS [None]
  - HYPOKALAEMIA [None]
  - MALAISE [None]
  - METASTATIC PAIN [None]
  - OSTEOMYELITIS [None]
  - OSTEONECROSIS [None]
  - PAIN [None]
  - POLYURIA [None]
  - PYREXIA [None]
  - SWELLING [None]
  - TOOTHACHE [None]
  - TRIGEMINAL NEURALGIA [None]
